FAERS Safety Report 16103896 (Version 1)
Quarter: 2019Q1

REPORT INFORMATION
  Report Type: Spontaneous
  Country: US (occurrence: US)
  Receive Date: 20190322
  Receipt Date: 20190322
  Transmission Date: 20190418
  Serious: No
  Sender: FDA-Public Use
  Company Number: US-HIKMA PHARMACEUTICALS USA INC.-US-H14001-18-03953

PATIENT
  Age: 69 Year
  Sex: Male
  Weight: 65 kg

DRUGS (1)
  1. FLUTICASONE. [Suspect]
     Active Substance: FLUTICASONE
     Indication: HYPERSENSITIVITY
     Route: 045
     Dates: start: 20180429

REACTIONS (6)
  - Nasal dryness [Not Recovered/Not Resolved]
  - Product dose omission [Unknown]
  - Increased viscosity of upper respiratory secretion [Not Recovered/Not Resolved]
  - Dry throat [Not Recovered/Not Resolved]
  - Nasopharyngitis [Not Recovered/Not Resolved]
  - Rhinorrhoea [Not Recovered/Not Resolved]

NARRATIVE: CASE EVENT DATE: 20180502
